FAERS Safety Report 8181606-3 (Version None)
Quarter: 2012Q1

REPORT INFORMATION
  Report Type: 
  Country: None (occurrence: None)
  Receive Date: 20120302
  Receipt Date: 20120223
  Transmission Date: 20120608
  Serious: Yes (Other)
  Sender: FDA-Public Use
  Company Number: US-FRI-1000024147

PATIENT
  Sex: Male
  Weight: 105.2 kg

DRUGS (10)
  1. ATENOLOL [Concomitant]
     Indication: SUPRAVENTRICULAR TACHYCARDIA
  2. EZETIMIBE [Concomitant]
     Indication: HYPERLIPIDAEMIA
     Dosage: 10 MG
     Route: 048
     Dates: start: 20061117
  3. CELEXA [Suspect]
     Indication: DEPRESSION
     Dosage: 10 MG
     Route: 048
     Dates: start: 20041207
  4. DILTIAZEM HCL [Suspect]
     Indication: VENTRICULAR EXTRASYSTOLES
     Dosage: 240 MG
     Route: 048
     Dates: start: 20021119, end: 20071003
  5. PANTOPRAZOLE [Concomitant]
     Indication: GASTROOESOPHAGEAL REFLUX DISEASE
     Dosage: 40 MG
     Route: 048
     Dates: start: 20031119
  6. TESTOSTERONE [Concomitant]
     Indication: BLOOD TESTOSTERONE DECREASED
     Dosage: 50 MG/5 G
     Route: 061
     Dates: start: 20030620
  7. SIMVASTATIN [Concomitant]
     Indication: HYPERLIPIDAEMIA
     Dosage: 80 MG
     Route: 048
     Dates: start: 20060923
  8. ATENOLOL [Concomitant]
     Indication: VENTRICULAR EXTRASYSTOLES
     Dosage: 25 MG
     Route: 048
     Dates: start: 20030620
  9. ASPIRIN [Concomitant]
     Indication: CARDIOVASCULAR EVENT PROPHYLAXIS
     Dosage: 325 MG
     Route: 048
     Dates: start: 20030620
  10. ATENOLOL [Concomitant]
     Indication: ATRIAL FIBRILLATION

REACTIONS (2)
  - SLEEP APNOEA SYNDROME [None]
  - MYOCLONUS [None]
